FAERS Safety Report 23439623 (Version 1)
Quarter: 2024Q1

REPORT INFORMATION
  Report Type: Spontaneous
  Country: CA (occurrence: CA)
  Receive Date: 20240124
  Receipt Date: 20240124
  Transmission Date: 20240410
  Serious: Yes (Hospitalization)
  Sender: FDA-Public Use
  Company Number: CA-ANIPHARMA-2024-CA-000355

PATIENT
  Age: 69 Year
  Sex: Male

DRUGS (1)
  1. CARBIDOPA\LEVODOPA [Suspect]
     Active Substance: CARBIDOPA\LEVODOPA
     Indication: Parkinson^s disease
     Dosage: UNKNOWN
     Route: 048

REACTIONS (2)
  - Vitamin B6 deficiency [Recovered/Resolved]
  - Generalised tonic-clonic seizure [Recovered/Resolved]
